FAERS Safety Report 18435485 (Version 1)
Quarter: 2020Q4

REPORT INFORMATION
  Report Type: Spontaneous
  Country: US (occurrence: US)
  Receive Date: 20201028
  Receipt Date: 20201028
  Transmission Date: 20210114
  Serious: Yes (Death)
  Sender: FDA-Public Use
  Company Number: None

PATIENT
  Age: 42 Year
  Sex: Male
  Weight: 85.05 kg

DRUGS (2)
  1. CLOZARIL [Concomitant]
     Active Substance: CLOZAPINE
  2. O.P.M.S. KRATOM GOLD [Suspect]
     Active Substance: HERBALS\MITRAGYNINE
     Indication: PAIN IN EXTREMITY
     Route: 048
     Dates: start: 20200801, end: 20200825

REACTIONS (1)
  - Herbal toxicity [None]

NARRATIVE: CASE EVENT DATE: 20200823
